FAERS Safety Report 21036009 (Version 1)
Quarter: 2022Q3

REPORT INFORMATION
  Report Type: Spontaneous
  Country: US (occurrence: US)
  Receive Date: 20220701
  Receipt Date: 20220701
  Transmission Date: 20221026
  Serious: No
  Sender: FDA-Public Use
  Company Number: US-KRAMERLABS-2021-US-021299

PATIENT
  Sex: Female

DRUGS (1)
  1. NIZORAL A-D [Suspect]
     Active Substance: KETOCONAZOLE
     Indication: Pruritus
     Dosage: USED FOR 10 WEEKS
     Route: 061

REACTIONS (3)
  - Drug ineffective [Unknown]
  - Expired product administered [Unknown]
  - Intentional product misuse [Unknown]
